FAERS Safety Report 9742919 (Version 3)
Quarter: 2014Q1

REPORT INFORMATION
  Report Type: Spontaneous
  Country: US (occurrence: US)
  Receive Date: 20131210
  Receipt Date: 20140113
  Transmission Date: 20141002
  Serious: Yes (Life-Threatening, Hospitalization, Other)
  Sender: FDA-Public Use
  Company Number: US-ELI_LILLY_AND_COMPANY-US96105005A

PATIENT
  Age: 59 Year
  Sex: Female

DRUGS (16)
  1. PROZAC [Suspect]
     Indication: DEPRESSION
     Dosage: 30 MG, DAILY (1/D)
     Dates: start: 199601
  2. FLEXERIL [Interacting]
     Indication: FIBROMYALGIA
     Dosage: 10 MG, DAILY (1/D)
     Route: 048
  3. AMLODIPINE [Concomitant]
     Dosage: 5 MG, DAILY (1/D)
     Route: 048
  4. DICLOFENAC [Concomitant]
     Dosage: 100 MG, DAILY (1/D)
     Route: 048
  5. HYDROCHLOROTHIAZIDE WITH TRIAMTERENE [Concomitant]
     Dosage: UNK, DAILY (1/D)
     Route: 048
  6. ATRACURIUM [Concomitant]
     Dosage: UNK, UNKNOWN
  7. BUPIVACAINE [Concomitant]
     Dosage: UNK, UNKNOWN
  8. CEFAZOLIN [Concomitant]
     Dosage: 1 G, DAILY (1/D)
     Route: 042
  9. DROPERIDOL [Concomitant]
     Dosage: 0.625 MG, DAILY (1/D)
     Route: 042
  10. FENTANYL [Concomitant]
     Dosage: UNK, UNKNOWN
  11. KETOROLAC [Concomitant]
     Dosage: UNK, UNKNOWN
  12. LIDOCAINE [Concomitant]
     Dosage: UNK, UNKNOWN
  13. METOCLOPRAMIDE [Concomitant]
     Dosage: 10 MG, DAILY (1/D)
     Route: 042
  14. MIDAZOLAM [Concomitant]
     Dosage: UNK, UNKNOWN
  15. NITROUS OXIDE [Concomitant]
     Dosage: UNK, UNKNOWN
  16. PROPOFOL [Concomitant]
     Dosage: UNK, UNKNOWN

REACTIONS (9)
  - Torsade de pointes [Recovered/Resolved]
  - Electrocardiogram QT prolonged [Recovered/Resolved]
  - Ventricular fibrillation [Recovered/Resolved]
  - Cardiac arrest [Recovered/Resolved]
  - Sinus tachycardia [Recovered/Resolved]
  - Blood magnesium increased [Recovered/Resolved]
  - Blood glucose increased [Recovered/Resolved]
  - Blood creatine phosphokinase increased [Recovered/Resolved]
  - Drug interaction [Recovered/Resolved]
